FAERS Safety Report 12170887 (Version 1)
Quarter: 2016Q1

REPORT INFORMATION
  Report Type: Spontaneous
  Country: US (occurrence: None)
  Receive Date: 20160310
  Receipt Date: 20160310
  Transmission Date: 20160526
  Serious: No
  Sender: FDA-Public Use
  Company Number: None

PATIENT
  Age: 39 Year
  Sex: Male

DRUGS (1)
  1. HUMIRA [Suspect]
     Active Substance: ADALIMUMAB
     Indication: COLITIS ULCERATIVE
     Dosage: 40 MG AS DIRECTED SC
     Route: 058
     Dates: start: 20160129, end: 20160308

REACTIONS (8)
  - Skin discolouration [None]
  - Injection site rash [None]
  - Suicidal ideation [None]
  - Anxiety [None]
  - Depression [None]
  - Swelling [None]
  - Erythema [None]
  - Pruritus [None]

NARRATIVE: CASE EVENT DATE: 20160201
